FAERS Safety Report 8192192-6 (Version None)
Quarter: 2012Q1

REPORT INFORMATION
  Report Type: 
  Country: None (occurrence: None)
  Receive Date: 20120307
  Receipt Date: 20120223
  Transmission Date: 20120608
  Serious: Yes (Other)
  Sender: FDA-Public Use
  Company Number: US-ELI_LILLY_AND_COMPANY-US201202007217

PATIENT
  Sex: Male

DRUGS (2)
  1. ZYPREXA [Suspect]
     Dosage: 30 MG, UNK
     Dates: start: 20110801
  2. ZYPREXA [Suspect]
     Dosage: 15 MG, UNK
     Dates: start: 20101001

REACTIONS (2)
  - OVERDOSE [None]
  - SOMNAMBULISM [None]
